FAERS Safety Report 9197803 (Version 1)
Quarter: 2013Q1

REPORT INFORMATION
  Report Type: Spontaneous
  Country: US (occurrence: US)
  Receive Date: 20130328
  Receipt Date: 20130328
  Transmission Date: 20140127
  Serious: Yes (Other)
  Sender: FDA-Public Use
  Company Number: US-PFIZER INC-2013100549

PATIENT
  Age: 64 Year
  Sex: Female
  Weight: 98.87 kg

DRUGS (3)
  1. LIPITOR [Suspect]
     Indication: BLOOD CHOLESTEROL INCREASED
     Dosage: 20 MG, DAILY
  2. LIPITOR [Suspect]
     Dosage: 80 MG, DAILY
  3. LIPITOR [Suspect]
     Dosage: UNK

REACTIONS (2)
  - Diabetes mellitus [Not Recovered/Not Resolved]
  - Fibromyalgia [Not Recovered/Not Resolved]
